FAERS Safety Report 14956258 (Version 1)
Quarter: 2018Q2

REPORT INFORMATION
  Report Type: Spontaneous
  Country: US (occurrence: US)
  Receive Date: 20180531
  Receipt Date: 20180531
  Transmission Date: 20180711
  Serious: No
  Sender: FDA-Public Use
  Company Number: US-NOVEN PHARMACEUTICALS, INC.-US2017000616

PATIENT

DRUGS (3)
  1. CLONIDINE. [Concomitant]
     Active Substance: CLONIDINE
  2. STRATTERA [Concomitant]
     Active Substance: ATOMOXETINE HYDROCHLORIDE
     Indication: ATTENTION DEFICIT/HYPERACTIVITY DISORDER
  3. DAYTRANA [Suspect]
     Active Substance: METHYLPHENIDATE
     Indication: ATTENTION DEFICIT/HYPERACTIVITY DISORDER
     Dosage: 15 MG, UNK
     Route: 062

REACTIONS (7)
  - Drug ineffective [Recovered/Resolved]
  - Restlessness [Recovered/Resolved]
  - Impulsive behaviour [Recovered/Resolved]
  - Anger [Recovered/Resolved]
  - Pseudologia [Recovered/Resolved]
  - Logorrhoea [Recovered/Resolved]
  - Aggression [Recovered/Resolved]
